FAERS Safety Report 9858091 (Version 2)
Quarter: 2014Q1

REPORT INFORMATION
  Report Type: Spontaneous
  Country: JP (occurrence: JP)
  Receive Date: 20140131
  Receipt Date: 20140131
  Transmission Date: 20141002
  Serious: Yes (Other)
  Sender: FDA-Public Use
  Company Number: JP-JNJFOC-20131109102

PATIENT
  Age: 87 Year
  Sex: Female

DRUGS (1)
  1. FINIBAX [Suspect]
     Indication: INFECTIOUS PLEURAL EFFUSION
     Route: 041
     Dates: start: 20131007, end: 20131012

REACTIONS (1)
  - Hyperkalaemia [Recovered/Resolved]
